FAERS Safety Report 6863673-X (Version None)
Quarter: 2010Q3

REPORT INFORMATION
  Report Type: 
  Country: None (occurrence: None)
  Receive Date: 20100721
  Receipt Date: 20080308
  Transmission Date: 20110219
  Serious: No
  Sender: FDA-Public Use
  Company Number: US-PFIZER INC-2008022358

PATIENT
  Sex: Female
  Weight: 100 kg

DRUGS (3)
  1. CHANTIX [Suspect]
     Indication: SMOKING CESSATION THERAPY
     Dates: start: 20080101, end: 20080201
  2. CORTICOSTEROID NOS [Interacting]
     Indication: RESPIRATORY TRACT INFECTION
     Dates: start: 20080131, end: 20080201
  3. CHOLESTEROL [Concomitant]
     Indication: BLOOD CHOLESTEROL INCREASED

REACTIONS (3)
  - ANXIETY [None]
  - DRUG INTERACTION [None]
  - RESPIRATORY TRACT INFECTION [None]
